FAERS Safety Report 16346651 (Version 1)
Quarter: 2019Q2

REPORT INFORMATION
  Report Type: Spontaneous
  Country: US (occurrence: US)
  Receive Date: 20190417
  Receipt Date: 20190417
  Transmission Date: 20190711
  Serious: No
  Sender: FDA-Public Use
  Company Number: None

PATIENT
  Age: 40 Year
  Sex: Male

DRUGS (1)
  1. STELARA [Suspect]
     Active Substance: USTEKINUMAB
     Dates: start: 201808

REACTIONS (5)
  - Insurance issue [None]
  - Anxiety [None]
  - Chest pain [None]
  - Dyspnoea [None]
  - Product dose omission [None]

NARRATIVE: CASE EVENT DATE: 20190417
